FAERS Safety Report 14478854 (Version 1)
Quarter: 2018Q1

REPORT INFORMATION
  Report Type: Spontaneous
  Country: US (occurrence: US)
  Receive Date: 20180202
  Receipt Date: 20180202
  Transmission Date: 20180509
  Serious: No
  Sender: FDA-Public Use
  Company Number: US-PFIZER INC-2018038559

PATIENT
  Age: 9 Year
  Sex: Male
  Weight: 25.85 kg

DRUGS (2)
  1. QUILLIVANT XR [Suspect]
     Active Substance: METHYLPHENIDATE HYDROCHLORIDE
     Dosage: 5 ML, 1X/DAY [IN THE MORNING]
     Route: 048
  2. QUILLIVANT XR [Suspect]
     Active Substance: METHYLPHENIDATE HYDROCHLORIDE
     Indication: ATTENTION DEFICIT/HYPERACTIVITY DISORDER
     Dosage: 4 ML, UNK

REACTIONS (9)
  - Feeling abnormal [Not Recovered/Not Resolved]
  - Therapeutic response shortened [Unknown]
  - Abnormal behaviour [Recovering/Resolving]
  - Aggression [Unknown]
  - Decreased appetite [Not Recovered/Not Resolved]
  - Sleep disorder [Not Recovered/Not Resolved]
  - Listless [Unknown]
  - Nightmare [Not Recovered/Not Resolved]
  - Emotional disorder [Not Recovered/Not Resolved]

NARRATIVE: CASE EVENT DATE: 201711
